FAERS Safety Report 8242185-5 (Version None)
Quarter: 2012Q1

REPORT INFORMATION
  Report Type: 
  Country: None (occurrence: None)
  Receive Date: 20120329
  Receipt Date: 20120319
  Transmission Date: 20120608
  Serious: Yes (Hospitalization, Other)
  Sender: FDA-Public Use
  Company Number: PH-AMGEN-PHLSP2012008799

PATIENT
  Age: 46 Year
  Sex: Female

DRUGS (4)
  1. ENBREL [Suspect]
     Indication: PSORIATIC ARTHROPATHY
     Dosage: UNK
     Dates: start: 20120120, end: 20120120
  2. METHOTREXATE [Concomitant]
     Dosage: 7.5MG TO 15MG, OD
     Dates: start: 20080101
  3. MEDROL [Concomitant]
     Indication: ARTHRITIS
     Dosage: 8MG OR 4 MG, PRN
     Dates: start: 20090101
  4. MEDROL [Concomitant]
     Indication: VASCULITIS
     Dosage: UNK

REACTIONS (3)
  - VARICES OESOPHAGEAL [None]
  - HAEMATEMESIS [None]
  - HEPATIC CIRRHOSIS [None]
